FAERS Safety Report 9265690 (Version 1)
Quarter: 2013Q2

REPORT INFORMATION
  Report Type: Report from Study
  Country: CA (occurrence: CA)
  Receive Date: 20130501
  Receipt Date: 20130501
  Transmission Date: 20140414
  Serious: Yes (Other)
  Sender: FDA-Public Use
  Company Number: CA-JNJFOC-20130414102

PATIENT
  Age: 29 Year
  Sex: Female
  Weight: 61 kg

DRUGS (2)
  1. REMICADE [Suspect]
     Indication: COLITIS ULCERATIVE
     Route: 042
     Dates: start: 20121021
  2. REMICADE [Suspect]
     Indication: COLITIS ULCERATIVE
     Route: 042
     Dates: start: 20130422

REACTIONS (6)
  - Chest discomfort [Recovered/Resolved]
  - Dyspnoea [Recovered/Resolved]
  - Flushing [Recovered/Resolved]
  - Apnoea [Recovered/Resolved]
  - Nausea [Recovered/Resolved]
  - Infusion related reaction [Recovered/Resolved]
